FAERS Safety Report 17170316 (Version 1)
Quarter: 2019Q4

REPORT INFORMATION
  Report Type: Spontaneous
  Country: BE (occurrence: BE)
  Receive Date: 20191218
  Receipt Date: 20191218
  Transmission Date: 20200122
  Serious: Yes (Hospitalization)
  Sender: FDA-Public Use
  Company Number: BE-JNJFOC-20191214184

PATIENT
  Age: 66 Year
  Sex: Female

DRUGS (2)
  1. YONDELIS [Suspect]
     Active Substance: TRABECTEDIN
     Indication: SYNOVIAL SARCOMA
     Dosage: FIRST 2 COURSES
     Route: 042
     Dates: start: 2019, end: 2019
  2. YONDELIS [Suspect]
     Active Substance: TRABECTEDIN
     Dosage: THIRD COURSE
     Route: 042
     Dates: start: 20191022

REACTIONS (1)
  - Interstitial lung disease [Unknown]

NARRATIVE: CASE EVENT DATE: 20191105
